FAERS Safety Report 8327806-0 (Version None)
Quarter: 2012Q2

REPORT INFORMATION
  Report Type: 
  Country: None (occurrence: None)
  Receive Date: 20120502
  Receipt Date: 20120425
  Transmission Date: 20120825
  Serious: No
  Sender: FDA-Public Use
  Company Number: US-PFIZER INC-2012101677

PATIENT
  Sex: Female

DRUGS (2)
  1. FLECTOR [Suspect]
     Dosage: UNK
     Dates: start: 20120424
  2. VICODIN [Suspect]
     Dosage: UNK

REACTIONS (1)
  - DIZZINESS [None]
